FAERS Safety Report 5029977-0 (Version None)
Quarter: 2006Q2

REPORT INFORMATION
  Report Type: 
  Country: None (occurrence: None)
  Receive Date: 20060620
  Receipt Date: 20060509
  Transmission Date: 20061013
  Serious: Yes (Life-Threatening, Other)
  Sender: FDA-Public Use
  Company Number: JP-MERCK-0605USA01937

PATIENT
  Age: 72 Year
  Sex: Female

DRUGS (16)
  1. DECADRON [Suspect]
     Indication: PROPHYLAXIS OF NAUSEA AND VOMITING
     Route: 048
     Dates: start: 20050901, end: 20050901
  2. DECADRON [Suspect]
     Route: 048
     Dates: start: 20050921, end: 20050921
  3. DECADRON [Suspect]
     Route: 048
     Dates: start: 20051013, end: 20051013
  4. DECADRON [Suspect]
     Route: 048
     Dates: start: 20051104, end: 20051104
  5. ADRIACIN [Concomitant]
     Route: 042
     Dates: start: 20050901, end: 20050901
  6. ADRIACIN [Concomitant]
     Route: 042
     Dates: start: 20050921, end: 20050921
  7. ADRIACIN [Concomitant]
     Route: 042
     Dates: start: 20051013, end: 20051013
  8. ADRIACIN [Concomitant]
     Route: 042
     Dates: start: 20051104, end: 20051104
  9. ENDOXAN [Concomitant]
     Route: 042
     Dates: start: 20050901, end: 20050901
  10. ENDOXAN [Concomitant]
     Route: 042
     Dates: start: 20050921, end: 20050921
  11. ENDOXAN [Concomitant]
     Route: 042
     Dates: start: 20051013, end: 20051013
  12. ENDOXAN [Concomitant]
     Route: 042
     Dates: start: 20051104, end: 20051104
  13. NASEA [Concomitant]
     Route: 042
     Dates: start: 20050901, end: 20050901
  14. NASEA [Concomitant]
     Route: 042
     Dates: start: 20050921, end: 20050921
  15. NASEA [Concomitant]
     Route: 042
     Dates: start: 20051013, end: 20051013
  16. NASEA [Concomitant]
     Route: 042
     Dates: start: 20051104, end: 20051104

REACTIONS (3)
  - ALANINE AMINOTRANSFERASE INCREASED [None]
  - ASPARTATE AMINOTRANSFERASE INCREASED [None]
  - HEPATIC FUNCTION ABNORMAL [None]
